FAERS Safety Report 6141007-6 (Version None)
Quarter: 2009Q2

REPORT INFORMATION
  Report Type: 
  Country: None (occurrence: None)
  Receive Date: 20090402
  Receipt Date: 20090326
  Transmission Date: 20091009
  Serious: Yes (Death, Life-Threatening)
  Sender: FDA-Public Use
  Company Number: DK-ELI_LILLY_AND_COMPANY-DK200903006833

PATIENT
  Sex: Female

DRUGS (5)
  1. TERIPARATIDE [Suspect]
     Indication: OSTEOPOROSIS
     Dosage: 20 UG, DAILY (1/D)
     Route: 058
     Dates: start: 20080201
  2. DOLOL [Concomitant]
     Indication: BACK PAIN
     Dosage: 50 MG, AS NEEDED
     Dates: start: 20080812
  3. CORODIL [Concomitant]
     Indication: HYPERTENSION
  4. CALCIUM [Concomitant]
     Indication: OSTEOPOROSIS
     Dates: start: 20080109
  5. VITAMIN D [Concomitant]
     Indication: OSTEOPOROSIS
     Dates: start: 20080109

REACTIONS (1)
  - DEATH [None]
